FAERS Safety Report 23205086 (Version 3)
Quarter: 2023Q4

REPORT INFORMATION
  Report Type: Report from Study
  Country: CL (occurrence: CL)
  Receive Date: 20231120
  Receipt Date: 20231226
  Transmission Date: 20240110
  Serious: Yes (Other)
  Sender: FDA-Public Use
  Company Number: CL-002147023-NVSC2022CL265491

PATIENT
  Age: 40 Year
  Sex: Female

DRUGS (6)
  1. KISQALI [Suspect]
     Active Substance: RIBOCICLIB
     Indication: Malignant nipple neoplasm
     Dosage: 600 MG, QD
     Route: 048
     Dates: start: 20221116
  2. KISQALI [Suspect]
     Active Substance: RIBOCICLIB
     Indication: Breast cancer stage IV
     Dosage: 600 MG, QD
     Route: 048
     Dates: start: 20221116
  3. KISQALI [Suspect]
     Active Substance: RIBOCICLIB
     Indication: Breast cancer
     Dosage: 600 MG, QD
     Route: 048
  4. KISQALI [Suspect]
     Active Substance: RIBOCICLIB
     Dosage: UNK
     Route: 065
  5. KISQALI [Suspect]
     Active Substance: RIBOCICLIB
     Dosage: 600 MG, QD
     Route: 048
  6. LETROZOLE [Suspect]
     Active Substance: LETROZOLE
     Indication: Product used for unknown indication
     Dosage: UNK
     Route: 065
     Dates: start: 20221116

REACTIONS (14)
  - Metastases to bone [Unknown]
  - Leukopenia [Unknown]
  - Dysphonia [Recovering/Resolving]
  - Claustrophobia [Unknown]
  - Nodule [Recovered/Resolved]
  - Bone pain [Unknown]
  - Memory impairment [Unknown]
  - Decreased immune responsiveness [Unknown]
  - Nasopharyngitis [Unknown]
  - Diarrhoea [Unknown]
  - Back pain [Unknown]
  - Fatigue [Unknown]
  - Expired product administered [Unknown]
  - Laboratory test abnormal [Unknown]
